FAERS Safety Report 18491282 (Version 2)
Quarter: 2021Q1

REPORT INFORMATION
  Report Type: Spontaneous
  Country: US (occurrence: US)
  Receive Date: 20201111
  Receipt Date: 20210127
  Transmission Date: 20210419
  Serious: No
  Sender: FDA-Public Use
  Company Number: US-MILLICENT HOLDINGS LTD.-MILL20200993

PATIENT
  Age: 69 Year
  Sex: Female

DRUGS (2)
  1. PREMARIN [Concomitant]
     Active Substance: ESTROGENS, CONJUGATED
     Dosage: 0.45 MG
     Route: 048
     Dates: start: 20200826
  2. INTRAROSA [Suspect]
     Active Substance: PRASTERONE
     Indication: VAGINAL DISORDER
     Dosage: UNKNOWN
     Route: 067

REACTIONS (2)
  - Off label use [Unknown]
  - Device difficult to use [Unknown]
